FAERS Safety Report 12888365 (Version 1)
Quarter: 2016Q4

REPORT INFORMATION
  Report Type: Spontaneous
  Country: IN (occurrence: IN)
  Receive Date: 20161027
  Receipt Date: 20161027
  Transmission Date: 20170207
  Serious: Yes (Hospitalization)
  Sender: FDA-Public Use
  Company Number: IN-ACCORD-045154

PATIENT
  Age: 32 Year
  Sex: Female

DRUGS (1)
  1. QUETIAPINE. [Suspect]
     Active Substance: QUETIAPINE
     Dosage: RECEIVED 30 TABLETS OF QUETIAPINE 200 MG

REACTIONS (5)
  - Respiratory acidosis [Recovered/Resolved]
  - Somnolence [Recovered/Resolved]
  - Electrocardiogram QT prolonged [Recovered/Resolved]
  - Intentional overdose [Unknown]
  - Maternal exposure during pregnancy [Unknown]
